FAERS Safety Report 25797258 (Version 2)
Quarter: 2025Q4

REPORT INFORMATION
  Report Type: Spontaneous
  Country: BR (occurrence: BR)
  Receive Date: 20250912
  Receipt Date: 20251020
  Transmission Date: 20260118
  Serious: Yes (Other)
  Sender: ABBVIE
  Company Number: BR-ABBVIE-6453851

PATIENT
  Age: 55 Year
  Sex: Female
  Weight: 72 kg

DRUGS (9)
  1. HUMIRA [Suspect]
     Active Substance: ADALIMUMAB
     Indication: Uveitis
     Dosage: HUMIRA AC 40 MG IN 0.4 ML PEN
     Route: 058
     Dates: start: 20250825
  2. HUMIRA [Suspect]
     Active Substance: ADALIMUMAB
     Indication: Spondylitis
  3. LIVIAL [Concomitant]
     Active Substance: TIBOLONE
     Indication: Menopausal symptoms
  4. Exodus [Concomitant]
     Indication: Panic disorder
  5. DAPAGLIFLOZIN [Concomitant]
     Active Substance: DAPAGLIFLOZIN
     Indication: Product used for unknown indication
     Dosage: FORM STRENGTH 10MG
  6. EZETIMIBE\ROSUVASTATIN CALCIUM [Concomitant]
     Active Substance: EZETIMIBE\ROSUVASTATIN CALCIUM
     Indication: Product used for unknown indication
     Dosage: 10/10
  7. Dprev [Concomitant]
     Indication: Product used for unknown indication
     Dosage: (VITAMIN D 7.000)
  8. ROSUVASTATIN [Concomitant]
     Active Substance: ROSUVASTATIN
     Indication: Uveitis
     Dates: start: 20250919
  9. OZURDEX [Concomitant]
     Active Substance: DEXAMETHASONE
     Indication: Uveitis
     Dates: start: 20250919

REACTIONS (4)
  - Limb injury [Unknown]
  - Dermatitis [Recovering/Resolving]
  - Latent tuberculosis [Recovering/Resolving]
  - Hypersensitivity [Unknown]

NARRATIVE: CASE EVENT DATE: 20250101
